FAERS Safety Report 7604081-3 (Version None)
Quarter: 2011Q3

REPORT INFORMATION
  Report Type: 
  Country: None (occurrence: None)
  Receive Date: 20110712
  Receipt Date: 20110708
  Transmission Date: 20111222
  Serious: Yes (Death, Hospitalization, Other)
  Sender: FDA-Public Use
  Company Number: US-ROXANE LABORATORIES, INC.-2011-RO-00963RO

PATIENT
  Age: 77 Year
  Sex: Male

DRUGS (1)
  1. PREDNISONE [Suspect]
     Dosage: 60 MG

REACTIONS (8)
  - STRONGYLOIDIASIS [None]
  - MENINGITIS [None]
  - CYTOMEGALOVIRUS VIRAEMIA [None]
  - POSTOPERATIVE ILEUS [None]
  - DEATH [None]
  - ENTEROCOCCAL BACTERAEMIA [None]
  - BRONCHOPULMONARY ASPERGILLOSIS [None]
  - ENTEROCOCCAL INFECTION [None]
